FAERS Safety Report 11144003 (Version 2)
Quarter: 2015Q3

REPORT INFORMATION
  Report Type: Spontaneous
  Country: US (occurrence: US)
  Receive Date: 20150528
  Receipt Date: 20150824
  Transmission Date: 20151125
  Serious: Yes (Life-Threatening, Hospitalization)
  Sender: FDA-Public Use
  Company Number: US-JNJFOC-20150515870

PATIENT
  Age: 66 Year
  Sex: Male

DRUGS (7)
  1. NAPROXEN SODIUM. [Concomitant]
     Active Substance: NAPROXEN SODIUM
     Route: 065
  2. XARELTO [Suspect]
     Active Substance: RIVAROXABAN
     Indication: ATRIAL FIBRILLATION
     Route: 048
     Dates: start: 20140127, end: 20140414
  3. XARELTO [Suspect]
     Active Substance: RIVAROXABAN
     Indication: THROMBOSIS PROPHYLAXIS
     Route: 048
     Dates: start: 20140127, end: 20140414
  4. METOPROLOL TARTRATE. [Concomitant]
     Active Substance: METOPROLOL TARTRATE
     Route: 065
  5. XARELTO [Suspect]
     Active Substance: RIVAROXABAN
     Indication: CEREBROVASCULAR ACCIDENT PROPHYLAXIS
     Route: 048
     Dates: start: 20140127, end: 20140414
  6. AVAPRO [Concomitant]
     Active Substance: IRBESARTAN
     Route: 065
     Dates: start: 201401
  7. DILTIAZEM HCL EXTE-REL [Concomitant]
     Route: 065

REACTIONS (5)
  - Contusion [Unknown]
  - Fall [Unknown]
  - Pulmonary embolism [Unknown]
  - Wrist fracture [Unknown]
  - Intraventricular haemorrhage [Recovered/Resolved]

NARRATIVE: CASE EVENT DATE: 20140414
